FAERS Safety Report 10186037 (Version 2)
Quarter: 2014Q2

REPORT INFORMATION
  Report Type: Report from Study
  Country: US (occurrence: US)
  Receive Date: 20140521
  Receipt Date: 20140530
  Transmission Date: 20141212
  Serious: Yes (Other)
  Sender: FDA-Public Use
  Company Number: US-ABBVIE-14P-163-1237918-00

PATIENT
  Age: 43 Year
  Sex: Male
  Weight: 79.9 kg

DRUGS (7)
  1. HUMIRA [Suspect]
     Indication: COLITIS ULCERATIVE
     Dates: start: 20140509, end: 20140509
  2. HUMIRA [Suspect]
  3. PROAIR [Concomitant]
     Indication: ASTHMA
     Dosage: INHALER
     Route: 055
  4. SINGULAIR [Concomitant]
     Indication: ASTHMA
  5. ASMANEX [Concomitant]
     Indication: ASTHMA
     Route: 055
  6. ALLEGRA [Concomitant]
     Indication: PRODUCT USED FOR UNKNOWN INDICATION
  7. MULTIVITAMIN [Concomitant]
     Indication: PRODUCT USED FOR UNKNOWN INDICATION

REACTIONS (2)
  - Swelling [Recovering/Resolving]
  - Paraesthesia [Recovering/Resolving]
